FAERS Safety Report 11265684 (Version 1)
Quarter: 2015Q3

REPORT INFORMATION
  Report Type: Spontaneous
  Country: FR (occurrence: FR)
  Receive Date: 20150713
  Receipt Date: 20150713
  Transmission Date: 20151125
  Serious: Yes (Death, Hospitalization)
  Sender: FDA-Public Use
  Company Number: FR-PFIZER INC-2015226579

PATIENT
  Age: 98 Year
  Sex: Female

DRUGS (4)
  1. AMLOR [Suspect]
     Active Substance: AMLODIPINE BESYLATE
     Dosage: UNKNOWN
     Route: 048
  2. CORVASAL /00547101/ [Suspect]
     Active Substance: MOLSIDOMINE
     Dosage: UNKNOWN
     Route: 048
  3. BISOCE [Suspect]
     Active Substance: BISOPROLOL
     Dosage: UNKNOWN
     Route: 048
  4. LASILIX /00032601/ [Suspect]
     Active Substance: FUROSEMIDE
     Dosage: UNK
     Route: 048

REACTIONS (1)
  - Hyponatraemia [Fatal]

NARRATIVE: CASE EVENT DATE: 20150625
